FAERS Safety Report 24729454 (Version 1)
Quarter: 2024Q4

REPORT INFORMATION
  Report Type: Spontaneous
  Country: US (occurrence: US)
  Receive Date: 20241213
  Receipt Date: 20241213
  Transmission Date: 20250115
  Serious: No
  Sender: ACCORD
  Company Number: US-Accord-406701

PATIENT
  Age: 72 Year
  Sex: Male
  Weight: 172 kg

DRUGS (15)
  1. LEVOTHYROXINE SODIUM [Suspect]
     Active Substance: LEVOTHYROXINE SODIUM
     Indication: Scan thyroid gland
     Dates: start: 20230102
  2. AMLODIPINE [Concomitant]
     Active Substance: AMLODIPINE BESYLATE
     Dosage: STRENGTH: 10 MG, TAKE 1 TABLET DAILY
     Route: 048
     Dates: start: 20221129
  3. ASPIRIN [Concomitant]
     Active Substance: ASPIRIN
     Dosage: STRENGTH: 81 MG, TAKE 1 TABLET (81 MG) ONCE
     Route: 048
     Dates: start: 20221129
  4. ATORVASTATIN [Concomitant]
     Active Substance: ATORVASTATIN
     Dosage: STRENGTH: 10 MG, TAKE 1 TABLET DAILY
     Route: 048
     Dates: start: 20221129
  5. CALCIUM CARBONATE\CHOLECALCIFEROL [Concomitant]
     Active Substance: CALCIUM CARBONATE\CHOLECALCIFEROL
     Dosage: STRENGTH: 650 MG, TAKE 2 TABLETS DAILY
     Route: 048
  6. CELECOXIB [Concomitant]
     Active Substance: CELECOXIB
     Dosage: STRENGTH: 200 MG, TAKE 1 CAPSULE TWICE DAILY
     Route: 048
  7. DENOSUMAB [Concomitant]
     Active Substance: DENOSUMAB
     Dosage: STRENGTH: 60 MG/ML, INJECT 1 ML (60 MG) UNDER THE SKIN EVERY 6 MONTHS
  8. FOLIC ACID [Concomitant]
     Active Substance: FOLIC ACID
     Dosage: STRENGTH: 800 MCG, TAKE 1 TABLET DAILY
     Route: 048
  9. FLUTICASONE PROPIONATE [Concomitant]
     Active Substance: FLUTICASONE PROPIONATE
     Dosage: STRENGTH: 50 MCG, INHALE 1 SPRAY (50 MCG) INTO EACH NOSTRIL AS NEEDED
     Dates: start: 20221129
  10. HYDROCHLOROTHIAZIDE [Concomitant]
     Active Substance: HYDROCHLOROTHIAZIDE
     Dosage: STRENGTH: 25 MG, TAKE 1 TABLET DAILY
     Route: 048
     Dates: start: 20221129
  11. LOSARTAN [Concomitant]
     Active Substance: LOSARTAN
     Dosage: STRENGTH: 100 MG, TAKE 1 TABLET DAILY
     Route: 048
     Dates: start: 20230616
  12. METHOTREXATE [Concomitant]
     Active Substance: METHOTREXATE
     Dosage: STRENGTH: 15 MG, TAKE 1 TABLET ONCE A WEEK
     Route: 048
  13. IRON\VITAMINS [Concomitant]
     Active Substance: IRON\VITAMINS
     Dosage: STRENGTH: 18-400 MG-MCG, 1 TABLET DAILY
     Route: 048
  14. OMEPRAZOLE [Concomitant]
     Active Substance: OMEPRAZOLE
     Dosage: STRENGTH: 40 MG, TAKE 1 CAPSULE DAILY
     Route: 048
     Dates: start: 20221129
  15. SYNTHROID [Concomitant]
     Active Substance: LEVOTHYROXINE SODIUM
     Dosage: STRENGTH: 125 MCG, TAKE 1 TABLET DAILY
     Route: 048
     Dates: start: 20240202

REACTIONS (1)
  - Blood test abnormal [Unknown]
